FAERS Safety Report 9381827 (Version 2)
Quarter: 2013Q3

REPORT INFORMATION
  Report Type: Spontaneous
  Country: GB (occurrence: GB)
  Receive Date: 20130703
  Receipt Date: 20130711
  Transmission Date: 20140515
  Serious: Yes (Hospitalization, Other)
  Sender: FDA-Public Use
  Company Number: GB-PFIZER INC-2013192448

PATIENT
  Age: 43 Year
  Sex: Male
  Weight: 100 kg

DRUGS (3)
  1. ATORVASTATIN [Suspect]
     Dosage: UNK
     Dates: end: 20130611
  2. TICAGRELOR [Suspect]
     Dosage: UNK
     Dates: start: 20130608, end: 20130611
  3. RAMIPRIL [Concomitant]

REACTIONS (3)
  - Renal failure acute [Unknown]
  - Rhabdomyolysis [Unknown]
  - Alanine aminotransferase increased [Unknown]
